FAERS Safety Report 5140125-9 (Version None)
Quarter: 2006Q4

REPORT INFORMATION
  Report Type: 
  Country: None (occurrence: None)
  Receive Date: 20061024
  Receipt Date: 20061004
  Transmission Date: 20070319
  Serious: Yes (Hospitalization)
  Sender: FDA-Public Use
  Company Number: US200610001134

PATIENT
  Age: 51 Year
  Sex: Male
  Weight: 117.5 kg

DRUGS (1)
  1. ZYPREXA [Suspect]
     Dosage: 40 MG,
     Dates: start: 19960101

REACTIONS (5)
  - CORONARY ARTERY BYPASS [None]
  - DIABETES MELLITUS [None]
  - HYPERGLYCAEMIA [None]
  - HYPOGLYCAEMIA [None]
  - PRESCRIBED OVERDOSE [None]
